FAERS Safety Report 5076826-0 (Version None)
Quarter: 2006Q3

REPORT INFORMATION
  Report Type: 
  Country: None (occurrence: None)
  Receive Date: 20060810
  Receipt Date: 20060801
  Transmission Date: 20061208
  Serious: Yes (Hospitalization)
  Sender: FDA-Public Use
  Company Number: CH-BRISTOL-MYERS SQUIBB COMPANY-13467972

PATIENT
  Age: 47 Year
  Sex: Male

DRUGS (3)
  1. EFAVIRENZ [Suspect]
     Indication: HIV INFECTION
     Dosage: INTERRUPTED
     Route: 048
     Dates: start: 20030101
  2. ABACAVIR SULFATE [Concomitant]
  3. LAMIVUDINE [Concomitant]

REACTIONS (6)
  - CALCULUS URINARY [None]
  - CHILLS [None]
  - FLANK PAIN [None]
  - PYELONEPHRITIS [None]
  - PYREXIA [None]
  - SEPTIC SHOCK [None]
